FAERS Safety Report 7637605-0 (Version None)
Quarter: 2011Q3

REPORT INFORMATION
  Report Type: 
  Country: None (occurrence: None)
  Receive Date: 20110726
  Receipt Date: 20110719
  Transmission Date: 20111222
  Serious: Yes (Other)
  Sender: FDA-Public Use
  Company Number: PHHY2011JP50851

PATIENT
  Age: 28 Year
  Sex: Female
  Weight: 50 kg

DRUGS (4)
  1. FLUMAZENIL [Suspect]
     Dosage: 0.2 MG, UNK
     Route: 042
  2. MIDAZOLAM HCL [Suspect]
     Dosage: 2 MG, UNK
  3. PROPOFOL [Suspect]
     Dosage: UNK
  4. VITAMIN TAB [Concomitant]

REACTIONS (8)
  - INCOHERENT [None]
  - HYPERVENTILATION [None]
  - CONVULSION [None]
  - RESPIRATORY RATE INCREASED [None]
  - DEPRESSED LEVEL OF CONSCIOUSNESS [None]
  - ASTHENIA [None]
  - UNRESPONSIVE TO STIMULI [None]
  - SLEEP TALKING [None]
